FAERS Safety Report 10209844 (Version 1)
Quarter: 2014Q2

REPORT INFORMATION
  Report Type: Spontaneous
  Country: US (occurrence: US)
  Receive Date: 20140602
  Receipt Date: 20140602
  Transmission Date: 20141212
  Serious: No
  Sender: FDA-Public Use
  Company Number: US-009507513-1405USA014436

PATIENT
  Sex: 0

DRUGS (1)
  1. JANUMET [Suspect]
     Dosage: 50/1000, TWICE DAILY
     Route: 048
     Dates: start: 201404

REACTIONS (2)
  - Expired product administered [Unknown]
  - No adverse event [Unknown]
